FAERS Safety Report 6474332-X (Version None)
Quarter: 2009Q4

REPORT INFORMATION
  Report Type: 
  Country: None (occurrence: None)
  Receive Date: 20091204
  Receipt Date: 20091126
  Transmission Date: 20100525
  Serious: Yes (Hospitalization)
  Sender: FDA-Public Use
  Company Number: GXKR2009GB12856

PATIENT
  Age: 60 Year
  Sex: Female

DRUGS (4)
  1. CODEINE PHOSPHATE (NGX) [Suspect]
     Indication: ANALGESIC THERAPY
     Dosage: 30-60 MG, QID
     Route: 048
  2. DABIGATRAN [Suspect]
     Indication: THROMBOSIS PROPHYLAXIS
     Dosage: 220 MG/DAY
     Route: 048
  3. LEVOTHYROXINE SODIUM [Suspect]
     Indication: THYROID DISORDER
     Dosage: 150 MG/DAY
     Route: 048
  4. PARACETAMOL [Suspect]
     Indication: ANALGESIC THERAPY
     Dosage: 1 G, QID
     Route: 048

REACTIONS (3)
  - BLISTER [None]
  - WOUND DRAINAGE [None]
  - WOUND SECRETION [None]
